FAERS Safety Report 7899484 (Version 5)
Quarter: 2013Q3

REPORT INFORMATION
  Report Type: Report from Study
  Country: FR (occurrence: FR)
  Receive Date: 20110414
  Receipt Date: 20130902
  Transmission Date: 20140515
  Serious: Yes (Hospitalization, Other)
  Sender: FDA-Public Use
  Company Number: FR-MERCK-1104FRA00049

PATIENT
  Age: 69 Year
  Sex: Male
  Weight: 94 kg

DRUGS (13)
  1. SITAGLIPTIN PHOSPHATE [Suspect]
     Indication: TYPE 2 DIABETES MELLITUS
     Dosage: 100 MG, QD
     Route: 048
     Dates: start: 20100114, end: 20110624
  2. METFORMIN [Suspect]
     Indication: TYPE 2 DIABETES MELLITUS
     Dosage: 1000 MG, BID
     Route: 048
     Dates: start: 2009, end: 20091021
  3. METFORMIN [Suspect]
     Dosage: 1000 MG, TID
     Route: 048
     Dates: start: 20091021, end: 20110128
  4. NOVO-NORM [Concomitant]
     Indication: TYPE 2 DIABETES MELLITUS
     Dosage: 2 MG, TID
     Route: 048
     Dates: start: 20110128, end: 20110624
  5. AMLOR [Concomitant]
  6. ALPRESS LP [Concomitant]
  7. KALEORID [Concomitant]
  8. ZYLORIC [Concomitant]
  9. PREVISCAN [Concomitant]
  10. TAHOR [Concomitant]
     Indication: DYSLIPIDAEMIA
     Dosage: 10 MG, UNK
  11. TEMERIT [Concomitant]
     Indication: HYPERTENSION
     Dosage: 5 MG, UNK
  12. LASILIX [Concomitant]
     Indication: HYPERTENSION
     Dosage: UNK
  13. CORDARONE [Concomitant]
     Indication: ATRIAL FIBRILLATION
     Dosage: UNK

REACTIONS (2)
  - Extremity necrosis [Recovered/Resolved]
  - Renal failure acute [Recovered/Resolved]
